FAERS Safety Report 6208253-4 (Version None)
Quarter: 2009Q2

REPORT INFORMATION
  Report Type: 
  Country: None (occurrence: None)
  Receive Date: 20090522
  Receipt Date: 20090514
  Transmission Date: 20091009
  Serious: Yes (Death, Other)
  Sender: FDA-Public Use
  Company Number: ADE2009-0618

PATIENT
  Age: 37 Week
  Sex: Male
  Weight: 1.976 kg

DRUGS (1)
  1. METFORMIN HYDROCHLORIDE [Suspect]
     Indication: GESTATIONAL DIABETES
     Dosage: 500MG, BID, TRANSPLACENT
     Route: 064
     Dates: start: 20080917, end: 20081113

REACTIONS (11)
  - CHORIOAMNIONITIS [None]
  - CRYPTORCHISM [None]
  - FOETAL DISORDER [None]
  - FOETAL GROWTH RETARDATION [None]
  - INTRA-UTERINE DEATH [None]
  - MATERNAL DRUGS AFFECTING FOETUS [None]
  - OESOPHAGEAL ATRESIA [None]
  - PLACENTAL DISORDER [None]
  - POLYHYDRAMNIOS [None]
  - THYMUS DISORDER [None]
  - TRACHEO-OESOPHAGEAL FISTULA [None]
